FAERS Safety Report 14472690 (Version 1)
Quarter: 2018Q1

REPORT INFORMATION
  Report Type: Spontaneous
  Country: SE (occurrence: SE)
  Receive Date: 20180201
  Receipt Date: 20180201
  Transmission Date: 20180509
  Serious: Yes (Other)
  Sender: FDA-Public Use
  Company Number: SE-BAXTER-2018BAX003316

PATIENT
  Age: 67 Year
  Sex: Male

DRUGS (1)
  1. NATRIUMKLORID BAXTER 9 MG/ML INFUSIONSV?TSKA, L?SNING [Suspect]
     Active Substance: SODIUM CHLORIDE
     Indication: PRODUCT USED FOR UNKNOWN INDICATION
     Route: 065

REACTIONS (4)
  - Sepsis [Unknown]
  - Drug administration error [None]
  - Product container issue [Unknown]
  - Suspected product contamination [None]
